FAERS Safety Report 4503748-3 (Version None)
Quarter: 2004Q4

REPORT INFORMATION
  Report Type: 
  Country: None (occurrence: None)
  Receive Date: 20041115
  Receipt Date: 20041104
  Transmission Date: 20050328
  Serious: Yes (Other)
  Sender: FDA-Public Use
  Company Number: 2004-05-0808

PATIENT
  Age: 58 Year
  Sex: Female

DRUGS (2)
  1. NASONEX [Suspect]
     Indication: RHINITIS
     Dosage: 1 PUFF/NARE QD NASAL SPRA
     Dates: start: 20031101, end: 20040201
  2. SYMBICORT (BUDESONIDE/FORMOTEROL) INHALATION SOLUTION [Suspect]
     Indication: LUNG DISORDER
     Dosage: 1 PUFF X 2 INHALATION
     Route: 055

REACTIONS (4)
  - BLOOD GLUCOSE INCREASED [None]
  - DIABETES MELLITUS INADEQUATE CONTROL [None]
  - DRUG INEFFECTIVE [None]
  - WEIGHT INCREASED [None]
